FAERS Safety Report 23845913 (Version 1)
Quarter: 2024Q2

REPORT INFORMATION
  Report Type: Report from Study
  Country: US (occurrence: US)
  Receive Date: 20240512
  Receipt Date: 20240512
  Transmission Date: 20240715
  Serious: Yes (Other)
  Sender: FDA-Public Use
  Company Number: US-ARGENX-2024-ARGX-US002560

PATIENT

DRUGS (1)
  1. VYVGART [Suspect]
     Active Substance: EFGARTIGIMOD ALFA-FCAB
     Indication: Myasthenia gravis
     Dosage: UNK
     Route: 042
     Dates: start: 20240409

REACTIONS (4)
  - Myasthenia gravis [Unknown]
  - Loss of control of legs [Unknown]
  - Fall [Unknown]
  - Fatigue [Unknown]

NARRATIVE: CASE EVENT DATE: 20240411
